FAERS Safety Report 6037712-2 (Version None)
Quarter: 2009Q1

REPORT INFORMATION
  Report Type: 
  Country: None (occurrence: None)
  Receive Date: 20090114
  Receipt Date: 20081230
  Transmission Date: 20090719
  Serious: Yes (Hospitalization)
  Sender: FDA-Public Use
  Company Number: FR-GENENTECH-274909

PATIENT
  Sex: Male

DRUGS (5)
  1. BEVACIZUMAB [Suspect]
     Indication: NEOPLASM MALIGNANT
     Dosage: 270 MG, Q21D
     Route: 042
     Dates: start: 20081211
  2. DACTINOMYCIN [Suspect]
     Indication: NEOPLASM MALIGNANT
     Dosage: 1.8 MG, Q21D
     Route: 042
     Dates: start: 20081211
  3. DOXORUBICIN HCL [Suspect]
     Indication: NEOPLASM MALIGNANT
     Dosage: 3.8 MG, Q21D
     Dates: start: 20081211
  4. IFOSFAMIDE [Suspect]
     Indication: NEOPLASM MALIGNANT
     Dosage: 3.6 G, Q21D
     Route: 042
     Dates: start: 20081212
  5. VINCRISTINE [Suspect]
     Indication: NEOPLASM MALIGNANT
     Dosage: 1.8 MG, Q21D
     Route: 042
     Dates: start: 20081211

REACTIONS (8)
  - ANAL FISSURE [None]
  - ANORECTAL DISORDER [None]
  - FEBRILE BONE MARROW APLASIA [None]
  - ILL-DEFINED DISORDER [None]
  - PYREXIA [None]
  - SKIN INFECTION [None]
  - SUBCUTANEOUS NODULE [None]
  - VIRAL UPPER RESPIRATORY TRACT INFECTION [None]
